FAERS Safety Report 8154440-8 (Version None)
Quarter: 2012Q1

REPORT INFORMATION
  Report Type: 
  Country: None (occurrence: None)
  Receive Date: 20120221
  Receipt Date: 20120216
  Transmission Date: 20120608
  Serious: Yes (Hospitalization, Other)
  Sender: FDA-Public Use
  Company Number: CN-BAYER-2012-015912

PATIENT
  Age: 55 Year
  Sex: Male

DRUGS (4)
  1. SODIUM CHLORIDE [Concomitant]
     Indication: PROPHYLAXIS
     Dosage: 500 ML, UNK
  2. NEXAVAR [Suspect]
     Indication: LUNG NEOPLASM MALIGNANT
     Dosage: 800 MG, QD
     Route: 048
  3. INSULIN [Concomitant]
     Indication: PROPHYLAXIS
     Dosage: 18 U, UNK
  4. NEXAVAR [Suspect]
     Dosage: 400 MG, QD

REACTIONS (8)
  - DIPLEGIA [None]
  - PAIN [None]
  - BLISTER [None]
  - DYSAESTHESIA [None]
  - HYPOAESTHESIA [None]
  - SKIN ULCER [None]
  - RASH [None]
  - SKIN EXFOLIATION [None]
